FAERS Safety Report 5899892-9 (Version None)
Quarter: 2008Q3

REPORT INFORMATION
  Report Type: 
  Country: None (occurrence: None)
  Receive Date: 20080926
  Receipt Date: 20080918
  Transmission Date: 20090109
  Serious: Yes (Death, Hospitalization)
  Sender: FDA-Public Use
  Company Number: US-ABBOTT-08P-163-0477183-00

PATIENT
  Sex: Female
  Weight: 77.634 kg

DRUGS (23)
  1. SYNTHROID [Suspect]
     Indication: HYPOTHYROIDISM
     Route: 048
     Dates: start: 20030101, end: 20080721
  2. GABAPENTIN [Concomitant]
     Indication: PAIN
     Route: 048
     Dates: start: 20080101, end: 20080721
  3. INSULIN [Concomitant]
     Indication: DIABETES MELLITUS
     Route: 058
     Dates: start: 20080101, end: 20080721
  4. CLOPIDOGREL [Concomitant]
     Indication: CARDIAC DISORDER
     Route: 048
     Dates: start: 20080101, end: 20080721
  5. HYDROCYCLINE [Concomitant]
     Indication: DRUG USE FOR UNKNOWN INDICATION
     Route: 048
     Dates: start: 20080101, end: 20080721
  6. VENAZEPRIL [Concomitant]
     Indication: DRUG USE FOR UNKNOWN INDICATION
     Route: 048
     Dates: start: 20080101, end: 20080721
  7. CLINOPIN [Concomitant]
     Indication: ANXIETY
     Route: 048
     Dates: start: 20080101, end: 20080721
  8. NEPHROTAPS [Concomitant]
     Indication: RENAL DISORDER
     Route: 048
     Dates: start: 20080101, end: 20080721
  9. ISOSORBIDE DINITRATE [Concomitant]
     Indication: CARDIAC DISORDER
     Route: 048
     Dates: start: 20080101, end: 20080721
  10. RANITIDINE [Concomitant]
     Indication: GASTROOESOPHAGEAL REFLUX DISEASE
     Route: 048
     Dates: start: 20080101, end: 20080721
  11. CYCBOCORT [Concomitant]
     Indication: DRUG USE FOR UNKNOWN INDICATION
     Route: 048
     Dates: start: 20080101, end: 20080721
  12. SEVELAMER [Concomitant]
     Indication: DRUG USE FOR UNKNOWN INDICATION
     Route: 048
     Dates: start: 20080101, end: 20080721
  13. ZYBOX [Concomitant]
     Indication: DRUG USE FOR UNKNOWN INDICATION
     Route: 048
     Dates: start: 20080101, end: 20080721
  14. TESSILEN PEARLS [Concomitant]
     Indication: DRUG USE FOR UNKNOWN INDICATION
     Route: 048
     Dates: start: 20080101, end: 20080721
  15. NYSTATIN [Concomitant]
     Indication: DRUG USE FOR UNKNOWN INDICATION
     Dates: start: 20070101, end: 20080721
  16. KENOLOG [Concomitant]
     Indication: DRUG USE FOR UNKNOWN INDICATION
     Dates: start: 20070101, end: 20080721
  17. ALPRAZOLAM [Concomitant]
     Indication: ANXIETY
     Route: 048
     Dates: start: 20070101, end: 20080721
  18. ZOLPIDEM TARTRATE [Concomitant]
     Indication: SLEEP DISORDER THERAPY
     Route: 048
     Dates: start: 20070101, end: 20080721
  19. ACETYLSALICYLIC ACID SRT [Concomitant]
     Indication: CARDIAC DISORDER
     Route: 048
     Dates: start: 20070101, end: 20080721
  20. IPRATROPIUM BROMIDE [Concomitant]
     Indication: ASTHMA
     Route: 055
     Dates: start: 20070101, end: 20080721
  21. PROAIR HFA [Concomitant]
     Indication: ASTHMA
     Route: 055
     Dates: start: 20070101, end: 20080721
  22. SEVELAMER [Concomitant]
     Dates: start: 20070101, end: 20080721
  23. ALPHAGAN [Concomitant]
     Indication: DRUG USE FOR UNKNOWN INDICATION
     Dates: start: 20070101, end: 20080721

REACTIONS (2)
  - CARDIAC ARREST [None]
  - HEMIPARESIS [None]
